FAERS Safety Report 7829057-2 (Version None)
Quarter: 2011Q4

REPORT INFORMATION
  Report Type: 
  Country: None (occurrence: None)
  Receive Date: 20111020
  Receipt Date: 20111018
  Transmission Date: 20120403
  Serious: No
  Sender: FDA-Public Use
  Company Number: US-TEVA-305694USA

PATIENT
  Sex: Female

DRUGS (2)
  1. PLAN B ONE-STEP [Suspect]
     Indication: POST COITAL CONTRACEPTION
     Dosage: 1.5 MILLIGRAM;
     Route: 048
     Dates: start: 20111018, end: 20111018
  2. BACTRIM [Concomitant]
     Indication: SINUSITIS

REACTIONS (4)
  - HEADACHE [None]
  - PELVIC PAIN [None]
  - PYREXIA [None]
  - BREAST PAIN [None]
